FAERS Safety Report 12639900 (Version 1)
Quarter: 2016Q3

REPORT INFORMATION
  Report Type: Spontaneous
  Country: JP (occurrence: JP)
  Receive Date: 20160810
  Receipt Date: 20160810
  Transmission Date: 20161109
  Serious: Yes (Death)
  Sender: FDA-Public Use
  Company Number: PHJP2016JP022597

PATIENT
  Age: 80 Year
  Sex: Male

DRUGS (1)
  1. NEORAL [Suspect]
     Active Substance: CYCLOSPORINE
     Indication: INTERSTITIAL LUNG DISEASE
     Dosage: UNK, QD
     Route: 048

REACTIONS (4)
  - Flushing [Unknown]
  - Death [Fatal]
  - Blood pressure increased [Unknown]
  - Product use issue [Unknown]
